FAERS Safety Report 16643641 (Version 1)
Quarter: 2019Q3

REPORT INFORMATION
  Report Type: Spontaneous
  Country: US (occurrence: US)
  Receive Date: 20190729
  Receipt Date: 20190729
  Transmission Date: 20191004
  Serious: No
  Sender: FDA-Public Use
  Company Number: US-PRINSTON PHARMACEUTICAL INC.-2018PRN01683

PATIENT
  Sex: Female
  Weight: 79.82 kg

DRUGS (5)
  1. LISINOPRIL (VINTAGE) [Suspect]
     Active Substance: LISINOPRIL
     Indication: HYPERTENSION
     Dosage: 30 MG, 1X/DAY
     Route: 048
     Dates: start: 2018, end: 2018
  2. LISINOPRIL. [Suspect]
     Active Substance: LISINOPRIL
     Dosage: 30 MG, EVERY OTHER DAY
     Route: 048
     Dates: start: 201811
  3. LISINOPRIL. [Suspect]
     Active Substance: LISINOPRIL
     Indication: HYPERTENSION
     Dosage: 30 MG, 1X/DAY
     Route: 048
     Dates: start: 2018, end: 2018
  4. METFORMIN [Concomitant]
     Active Substance: METFORMIN HYDROCHLORIDE
     Dosage: 500 MG, 2X/DAY
  5. LISINOPRIL (VINTAGE) [Suspect]
     Active Substance: LISINOPRIL
     Dosage: 30 MG, EVERY OTHER DAY
     Route: 048
     Dates: start: 201811

REACTIONS (2)
  - Oropharyngeal pain [Not Recovered/Not Resolved]
  - Throat irritation [Unknown]

NARRATIVE: CASE EVENT DATE: 2018
